FAERS Safety Report 7578124-X (Version None)
Quarter: 2011Q2

REPORT INFORMATION
  Report Type: 
  Country: None (occurrence: None)
  Receive Date: 20110628
  Receipt Date: 20110609
  Transmission Date: 20111010
  Serious: Yes (Hospitalization)
  Sender: FDA-Public Use
  Company Number: A0806054A

PATIENT
  Age: 55 Year
  Sex: Male
  Weight: 82.7 kg

DRUGS (10)
  1. ALBUTEROL SULFATE AUTOHALER [Concomitant]
  2. AVANDIA [Suspect]
     Indication: DIABETES MELLITUS
     Dosage: 2MG PER DAY
     Route: 048
     Dates: start: 20070101, end: 20070701
  3. ASPIRIN [Concomitant]
  4. GLUCOPHAGE [Concomitant]
  5. CADUET [Concomitant]
  6. K-DUR [Concomitant]
  7. COREG [Concomitant]
  8. NEXIUM [Concomitant]
  9. VASOTEC [Concomitant]
  10. ZYPREXA [Concomitant]

REACTIONS (3)
  - CHEST PAIN [None]
  - MYOCARDIAL INFARCTION [None]
  - ARRHYTHMIA [None]
